FAERS Safety Report 21792630 (Version 1)
Quarter: 2022Q4

REPORT INFORMATION
  Report Type: Report from Study
  Country: US (occurrence: US)
  Receive Date: 20221229
  Receipt Date: 20221229
  Transmission Date: 20230113
  Serious: Yes (Other)
  Sender: FDA-Public Use
  Company Number: US-ABBVIE-4251868

PATIENT
  Sex: Female

DRUGS (2)
  1. HUMIRA [Suspect]
     Active Substance: ADALIMUMAB
     Indication: Psoriatic arthropathy
     Dosage: LAST ADMIN DATE 2022. ALL EVENT ONSET WAS 2022.
     Route: 058
     Dates: start: 20221003
  2. HUMIRA [Suspect]
     Active Substance: ADALIMUMAB
     Indication: Psoriasis

REACTIONS (5)
  - Visual impairment [Unknown]
  - Blindness transient [Unknown]
  - Eye inflammation [Recovering/Resolving]
  - Glaucoma [Unknown]
  - Eye disorder [Unknown]
